FAERS Safety Report 8501093-2 (Version None)
Quarter: 2012Q3

REPORT INFORMATION
  Report Type: 
  Country: None (occurrence: None)
  Receive Date: 20120710
  Receipt Date: 20120702
  Transmission Date: 20120928
  Serious: Yes (Hospitalization, Other)
  Sender: FDA-Public Use
  Company Number: FR-ELI_LILLY_AND_COMPANY-FR201206005580

PATIENT
  Age: 41 Year
  Sex: Male
  Weight: 75 kg

DRUGS (1)
  1. EFFIENT [Suspect]
     Indication: ELECTROCARDIOGRAM ST SEGMENT DEPRESSION
     Dosage: 6 DSF ONE INTAKE
     Route: 048
     Dates: start: 20120612, end: 20120612

REACTIONS (2)
  - ANGIOEDEMA [None]
  - URTICARIA [None]
